FAERS Safety Report 24744029 (Version 1)
Quarter: 2024Q4

REPORT INFORMATION
  Report Type: Spontaneous
  Country: US (occurrence: None)
  Receive Date: 20241216
  Receipt Date: 20241216
  Transmission Date: 20250115
  Serious: Yes (Hospitalization, Disabling)
  Sender: Public
  Company Number: None

PATIENT
  Age: 54 Year
  Sex: Female
  Weight: 69.75 kg

DRUGS (4)
  1. INJECTAFER [Suspect]
     Active Substance: FERRIC CARBOXYMALTOSE
     Indication: Iron deficiency anaemia
     Dates: start: 20220615, end: 20240115
  2. PhosNaK 3 [Concomitant]
  3. CALCITRIOL [Concomitant]
     Active Substance: CALCITRIOL
  4. ASCORBIC ACID\IRON [Concomitant]
     Active Substance: ASCORBIC ACID\IRON

REACTIONS (2)
  - Blood phosphorus decreased [None]
  - Nephropathy toxic [None]

NARRATIVE: CASE EVENT DATE: 20240109
